FAERS Safety Report 12099638 (Version 1)
Quarter: 2016Q1

REPORT INFORMATION
  Report Type: Spontaneous
  Country: US (occurrence: None)
  Receive Date: 20160219
  Receipt Date: 20160219
  Transmission Date: 20160526
  Serious: No
  Sender: FDA-Public Use
  Company Number: None

PATIENT
  Age: 71 Year
  Sex: Male
  Weight: 86.5 kg

DRUGS (2)
  1. ETOPOSIDE (VP-16) [Suspect]
     Active Substance: ETOPOSIDE
     Dates: end: 20160127
  2. CISPLATIN. [Suspect]
     Active Substance: CISPLATIN
     Dates: end: 20160121

REACTIONS (1)
  - Haematology test abnormal [None]

NARRATIVE: CASE EVENT DATE: 20160215
